FAERS Safety Report 25331100 (Version 1)
Quarter: 2025Q2

REPORT INFORMATION
  Report Type: Spontaneous
  Country: US (occurrence: US)
  Receive Date: 20250519
  Receipt Date: 20250519
  Transmission Date: 20250717
  Serious: No
  Sender: BRISTOL-MYERS SQUIBB COMPANY
  Company Number: US-BRISTOL-MYERS SQUIBB COMPANY-2025-070928

PATIENT
  Sex: Female

DRUGS (2)
  1. ELIQUIS [Suspect]
     Active Substance: APIXABAN
     Indication: Pulmonary thrombosis
  2. ELIQUIS [Suspect]
     Active Substance: APIXABAN
     Indication: Dyspnoea

REACTIONS (3)
  - Inability to afford medication [Unknown]
  - Off label use [Unknown]
  - Insurance issue [Unknown]
